FAERS Safety Report 6409937-5 (Version None)
Quarter: 2009Q4

REPORT INFORMATION
  Report Type: 
  Country: None (occurrence: None)
  Receive Date: 20091022
  Receipt Date: 20091019
  Transmission Date: 20100525
  Serious: Yes (Hospitalization)
  Sender: FDA-Public Use
  Company Number: FR-BRISTOL-MYERS SQUIBB COMPANY-14824403

PATIENT
  Age: 31 Year
  Sex: Male

DRUGS (2)
  1. REYATAZ [Suspect]
     Dosage: 1 DF= 2 CAPS;STOPPED AND RESTARTED WITH REYATAZ 150MG CAPS
  2. NORVIR [Suspect]
     Dosage: 1 DF= 1 CAPS;STOPPED AND RESTARTED WITH NORVIR 1 CAPS IN THE EVENING

REACTIONS (1)
  - HALLUCINATION, AUDITORY [None]
